FAERS Safety Report 21771935 (Version 1)
Quarter: 2022Q4

REPORT INFORMATION
  Report Type: Report from Study
  Country: IE (occurrence: None)
  Receive Date: 20221223
  Receipt Date: 20221223
  Transmission Date: 20230113
  Serious: Yes (Other)
  Sender: FDA-Public Use
  Company Number: IE-Merck Healthcare KGaA-9363299

PATIENT
  Age: 64 Year
  Sex: Female

DRUGS (11)
  1. MAVENCLAD [Suspect]
     Active Substance: CLADRIBINE
     Indication: Relapsing-remitting multiple sclerosis
     Dosage: YEAR ONE WEEK ONE THERAPY: 2 DOSAGE FORM ON  DAYS 1 TO 3 AND 1 DOSAGE FORM ON DAYS 4 TO 5.
     Route: 048
     Dates: start: 20220620
  2. MAVENCLAD [Suspect]
     Active Substance: CLADRIBINE
     Dosage: YEAR ONE WEEK FIVE THERAPY: 2 DOSAGE FORM ON  DAYS 1 TO 3 AND 1 DOSAGE FORM ON DAYS 4 TO 5.
     Route: 048
     Dates: start: 20220718
  3. MAGNESIUM [Concomitant]
     Active Substance: MAGNESIUM
     Indication: Product used for unknown indication
     Route: 050
  4. MELATONIN [Concomitant]
     Active Substance: MELATONIN
     Indication: Product used for unknown indication
     Route: 050
  5. LEVOTHYROXINE [Concomitant]
     Active Substance: LEVOTHYROXINE
     Indication: Product used for unknown indication
     Route: 050
  6. ERGOCALCIFEROL [Concomitant]
     Active Substance: ERGOCALCIFEROL
     Indication: Product used for unknown indication
     Route: 050
  7. COVID-19 VACCINE [Concomitant]
     Indication: COVID-19 immunisation
     Dosage: FIRST DOSE.
  8. COVID-19 VACCINE [Concomitant]
     Dosage: SECOND DOSE.
  9. COVID-19 VACCINE [Concomitant]
     Dosage: THIRD DOSE.
  10. COVID-19 VACCINE [Concomitant]
     Dosage: FOURTH DOSE.
  11. COVID-19 VACCINE [Concomitant]
     Dosage: BOOSTER VACCINE (FIFTH DOSE).
     Dates: start: 202210

REACTIONS (2)
  - Colitis microscopic [Recovering/Resolving]
  - Decreased immune responsiveness [Recovering/Resolving]

NARRATIVE: CASE EVENT DATE: 20220901
